FAERS Safety Report 18549970 (Version 1)
Quarter: 2020Q4

REPORT INFORMATION
  Report Type: Spontaneous
  Country: US (occurrence: US)
  Receive Date: 20201126
  Receipt Date: 20201126
  Transmission Date: 20210114
  Serious: Yes (Hospitalization)
  Sender: FDA-Public Use
  Company Number: US-B.I. PHARMACEUTICALS,INC./RIDGEFIELD-2020-BI-063698

PATIENT
  Sex: Female

DRUGS (1)
  1. SPIRIVA RESPIMAT [Suspect]
     Active Substance: TIOTROPIUM BROMIDE
     Indication: PRODUCT USED FOR UNKNOWN INDICATION
     Dosage: 2 INHALATIONS BY MOUTH DAILY
     Route: 055
     Dates: start: 202007

REACTIONS (4)
  - Asthenia [Unknown]
  - Cardiac disorder [Unknown]
  - Respiration abnormal [Unknown]
  - Burnout syndrome [Unknown]

NARRATIVE: CASE EVENT DATE: 202011
